FAERS Safety Report 8621697-6 (Version None)
Quarter: 2012Q3

REPORT INFORMATION
  Report Type: 
  Country: None (occurrence: None)
  Receive Date: 20120821
  Receipt Date: 20120821
  Transmission Date: 20120928
  Serious: No
  Sender: FDA-Public Use
  Company Number: None

PATIENT
  Sex: Female
  Weight: 79.3795 kg

DRUGS (3)
  1. ESTRADIOL [Suspect]
     Indication: HORMONE REPLACEMENT THERAPY
     Dosage: 1 MG, 1 DAILY, PO
     Route: 048
     Dates: start: 20090601, end: 20090701
  2. ESTRADIOL [Suspect]
     Indication: POSTMENOPAUSE
     Dosage: 1 MG, 1 DAILY, PO
     Route: 048
     Dates: start: 20090601, end: 20090701
  3. ESTRADIOL [Suspect]
     Dosage: 0.5 MG, 1+1/2 DAILY, PO
     Route: 048
     Dates: start: 20120701, end: 20120715

REACTIONS (7)
  - DYSPHONIA [None]
  - PRODUCT SUBSTITUTION ISSUE [None]
  - HAIR GROWTH ABNORMAL [None]
  - PRODUCT QUALITY ISSUE [None]
  - SKIN ODOUR ABNORMAL [None]
  - HYPERHIDROSIS [None]
  - DRUG INEFFECTIVE [None]
